FAERS Safety Report 7206267-9 (Version None)
Quarter: 2010Q4

REPORT INFORMATION
  Report Type: 
  Country: None (occurrence: None)
  Receive Date: 20101217
  Receipt Date: 20101203
  Transmission Date: 20110411
  Serious: Yes (Hospitalization)
  Sender: FDA-Public Use
  Company Number: GER/UKI/10/0016846

PATIENT
  Age: 56 Year
  Sex: Female

DRUGS (5)
  1. SERTRALINE HYDROCHLORIDE [Suspect]
     Indication: PRODUCT USED FOR UNKNOWN INDICATION
  2. DIAZEPAM [Suspect]
     Indication: PRODUCT USED FOR UNKNOWN INDICATION
  3. LITHIUM CARBONATE [Suspect]
     Indication: PRODUCT USED FOR UNKNOWN INDICATION
  4. SEROQUEL XR [Suspect]
     Indication: DEPRESSION
     Dosage: 800 MG, 1 IN 1 D, ORAL, 800 MG, 1 IN 1 D, ORAL
     Route: 048
  5. SEROQUEL XR [Suspect]
     Indication: PSYCHOTIC DISORDER
     Dosage: 800 MG, 1 IN 1 D, ORAL, 800 MG, 1 IN 1 D, ORAL
     Route: 048

REACTIONS (1)
  - NEUROLEPTIC MALIGNANT SYNDROME [None]
